FAERS Safety Report 9016542 (Version 1)
Quarter: 2013Q1

REPORT INFORMATION
  Report Type: Spontaneous
  Country: GB (occurrence: GB)
  Receive Date: 20130116
  Receipt Date: 20130116
  Transmission Date: 20140127
  Serious: Yes (Disabling)
  Sender: FDA-Public Use
  Company Number: GB-ROCHE-1166031

PATIENT
  Sex: Male

DRUGS (6)
  1. ROFERON-A [Suspect]
     Indication: SKIN CANCER
     Route: 030
     Dates: start: 200904
  2. AMLODIPINE [Concomitant]
     Route: 048
     Dates: start: 2006
  3. WARFARIN [Concomitant]
     Dosage: 2 MG/3 MG
     Route: 048
     Dates: start: 201211
  4. BENDROFLUAZIDE [Concomitant]
  5. RAMIPRIL [Concomitant]
     Route: 048
     Dates: start: 2006
  6. BISOPROLOL [Concomitant]
     Route: 048
     Dates: start: 201209

REACTIONS (1)
  - Tinnitus [Not Recovered/Not Resolved]
